FAERS Safety Report 17713715 (Version 4)
Quarter: 2020Q4

REPORT INFORMATION
  Report Type: Spontaneous
  Country: JP (occurrence: JP)
  Receive Date: 20200427
  Receipt Date: 20201124
  Transmission Date: 20210113
  Serious: Yes (Other)
  Sender: FDA-Public Use
  Company Number: JP-PFIZER INC-2020164681

PATIENT
  Age: 76 Year
  Sex: Male

DRUGS (6)
  1. SALAZOSULFAPYRIDINE [Concomitant]
     Active Substance: SULFASALAZINE
     Dosage: UNK
     Route: 048
  2. ESOMEPRAZOLE MAGNESIUM HYDRATE [Concomitant]
     Active Substance: ESOMEPRAZOLE MAGNESIUM
     Dosage: UNK
     Route: 048
  3. ICOSAPENT ETHYL [Concomitant]
     Active Substance: ICOSAPENT ETHYL
     Dosage: UNK
     Route: 048
  4. MIZORIBINE [Concomitant]
     Active Substance: MIZORIBINE
     Dosage: UNK
     Route: 048
  5. CELECOXIB. [Concomitant]
     Active Substance: CELECOXIB
     Dosage: UNK
     Route: 048
  6. METHOTREXATE SODIUM. [Suspect]
     Active Substance: METHOTREXATE SODIUM
     Dosage: 16 MG, WEEKLY
     Route: 048

REACTIONS (2)
  - Tongue ulceration [Recovering/Resolving]
  - Lymphoproliferative disorder [Recovering/Resolving]
